FAERS Safety Report 15853545 (Version 1)
Quarter: 2018Q4

REPORT INFORMATION
  Report Type: Spontaneous
  Country: US (occurrence: US)
  Receive Date: 20181228
  Receipt Date: 20181228
  Transmission Date: 20190205
  Serious: Yes (Disabling, Other)
  Sender: FDA-Public Use
  Company Number: None

PATIENT
  Age: 70 Year
  Sex: Female
  Weight: 112.5 kg

DRUGS (3)
  1. T4 [Concomitant]
     Active Substance: LEVOTHYROXINE
  2. LEVOTHYROXINE. [Suspect]
     Active Substance: LEVOTHYROXINE
     Indication: HYPOTHYROIDISM
     Route: 048
  3. T3 [Concomitant]
     Active Substance: LIOTHYRONINE SODIUM

REACTIONS (8)
  - Loss of personal independence in daily activities [None]
  - Product quality issue [None]
  - Pain [None]
  - Joint range of motion decreased [None]
  - Wrong technique in product usage process [None]
  - Muscular weakness [None]
  - Drug interaction [None]
  - Reaction to azo-dyes [None]

NARRATIVE: CASE EVENT DATE: 20181219
